FAERS Safety Report 19636811 (Version 2)
Quarter: 2021Q3

REPORT INFORMATION
  Report Type: Spontaneous
  Country: JP (occurrence: JP)
  Receive Date: 20210729
  Receipt Date: 20210825
  Transmission Date: 20211014
  Serious: Yes (Other)
  Sender: FDA-Public Use
  Company Number: JP-PFIZER INC-202100923984

PATIENT
  Age: 33 Year

DRUGS (3)
  1. SOLU?CORTEF [Suspect]
     Active Substance: HYDROCORTISONE SODIUM SUCCINATE
     Dosage: 100 MG, DAILY
     Route: 042
     Dates: start: 20210713, end: 20210713
  2. LABELLEFILLE 21 [Concomitant]
     Indication: UTERINE LEIOMYOMA
     Dosage: UNK
     Route: 048
  3. COMIRNATY [Concomitant]
     Active Substance: TOZINAMERAN
     Dosage: UNKNOWN DOSE, FIRST DOSE
     Dates: start: 20210713

REACTIONS (5)
  - Seizure [Not Recovered/Not Resolved]
  - Diplegia [Recovering/Resolving]
  - Hyperventilation [Unknown]
  - Mental status changes [Unknown]
  - Nausea [Not Recovered/Not Resolved]

NARRATIVE: CASE EVENT DATE: 20210713
